FAERS Safety Report 5587004-0 (Version None)
Quarter: 2008Q1

REPORT INFORMATION
  Report Type: 
  Country: None (occurrence: None)
  Receive Date: 20080110
  Receipt Date: 20080107
  Transmission Date: 20080703
  Serious: Yes (Other)
  Sender: FDA-Public Use
  Company Number: A0701676A

PATIENT
  Age: 79 Year
  Sex: Female

DRUGS (5)
  1. CARVEDILOL [Suspect]
     Route: 048
     Dates: start: 20070401, end: 20071101
  2. COREG CR [Suspect]
     Dosage: 20MG PER DAY
     Route: 048
     Dates: start: 20071101
  3. UNKNOWN MEDICATION [Concomitant]
  4. LASIX [Concomitant]
  5. ASPIRIN [Concomitant]

REACTIONS (4)
  - ASTHENIA [None]
  - DIZZINESS [None]
  - DRY EYE [None]
  - PSORIASIS [None]
